FAERS Safety Report 8238186-3 (Version None)
Quarter: 2012Q1

REPORT INFORMATION
  Report Type: 
  Country: None (occurrence: None)
  Receive Date: 20120327
  Receipt Date: 20120319
  Transmission Date: 20120608
  Serious: Yes (Hospitalization, Other)
  Sender: FDA-Public Use
  Company Number: IT-BAYER-2012-026818

PATIENT

DRUGS (6)
  1. BISOPROLOL FUMARATE [Concomitant]
     Dosage: DAILY DOSE 1.25 MG
     Route: 048
     Dates: start: 20100615
  2. MEGESTROL ACETATE [Concomitant]
     Dosage: DAILY DOSE 160 MG
     Route: 048
     Dates: start: 20080615
  3. FUROSEMIDE [Concomitant]
     Dosage: DAILY DOSE 25 MG
     Route: 048
     Dates: start: 20100615
  4. NEXAVAR [Suspect]
     Indication: HEPATIC NEOPLASM MALIGNANT
     Dosage: DAILY DOSE 400 MG
     Route: 048
     Dates: start: 20120301, end: 20120307
  5. PANTOPRAZOLE [Concomitant]
     Dosage: DAILY DOSE 40 MG
     Route: 048
     Dates: start: 20100515
  6. POTASSIUM CANRENOATE [Concomitant]
     Dosage: DAILY DOSE 100 MG
     Route: 048
     Dates: start: 20100615

REACTIONS (1)
  - HEPATIC ENCEPHALOPATHY [None]
